FAERS Safety Report 13827978 (Version 1)
Quarter: 2017Q3

REPORT INFORMATION
  Report Type: Spontaneous
  Country: ES (occurrence: VE)
  Receive Date: 20170803
  Receipt Date: 20170803
  Transmission Date: 20171127
  Serious: Yes (Other)
  Sender: FDA-Public Use
  Company Number: ES-BRISTOL-MYERS SQUIBB COMPANY-BMS-2017-069050

PATIENT
  Age: 17 Year
  Sex: Male
  Weight: 27 kg

DRUGS (1)
  1. NIVOLUMAB [Suspect]
     Active Substance: NIVOLUMAB
     Indication: HODGKIN^S DISEASE
     Dosage: 160 MG, UNK
     Route: 042
     Dates: start: 20170131

REACTIONS (2)
  - Haemodialysis [Unknown]
  - Malignant neoplasm progression [Unknown]
